FAERS Safety Report 8732452 (Version 2)
Quarter: 2015Q2

REPORT INFORMATION
  Report Type: Report from Study
  Country: US (occurrence: US)
  Receive Date: 20120912
  Receipt Date: 20150624
  Transmission Date: 20150821
  Serious: Yes (Hospitalization)
  Sender: FDA-Public Use
  Company Number: US-ROCHE-1099824

PATIENT
  Age: 50 Year
  Sex: Male

DRUGS (15)
  1. ACTIVASE [Suspect]
     Active Substance: ALTEPLASE
     Route: 065
  2. PEPCID [Concomitant]
     Active Substance: FAMOTIDINE
     Route: 042
  3. ACTIVASE [Suspect]
     Active Substance: ALTEPLASE
     Route: 065
     Dates: start: 19901118
  4. HEPARIN [Concomitant]
     Active Substance: HEPARIN SODIUM
  5. ATROPINE [Concomitant]
     Active Substance: ATROPINE
  6. ACTIVASE [Suspect]
     Active Substance: ALTEPLASE
     Indication: ACUTE MYOCARDIAL INFARCTION
     Route: 065
     Dates: start: 19901118
  7. COMPAZINE [Concomitant]
     Active Substance: PROCHLORPERAZINE MALEATE
     Route: 065
  8. ASPIRIN. [Concomitant]
     Active Substance: ASPIRIN
  9. XYLOCAINE [Concomitant]
     Active Substance: LIDOCAINE HYDROCHLORIDE
     Route: 065
  10. MORPHINE [Concomitant]
     Active Substance: MORPHINE
     Route: 065
  11. TYLENOL [Concomitant]
     Active Substance: ACETAMINOPHEN
     Route: 048
  12. TENORMIN [Concomitant]
     Active Substance: ATENOLOL
  13. TRIDIL [Concomitant]
     Active Substance: NITROGLYCERIN
     Route: 042
  14. DULCOLAX TABLET [Concomitant]
  15. NITROGLYCERIN. [Concomitant]
     Active Substance: NITROGLYCERIN
     Dosage: AT 3.00 A.M AND 10.00 A.M
     Route: 065

REACTIONS (13)
  - Chest pain [Unknown]
  - Hypotension [Unknown]
  - Purpura [Unknown]
  - Haematuria [Unknown]
  - Haematemesis [Unknown]
  - Chest discomfort [Unknown]
  - Cardiomegaly [Unknown]
  - Nausea [Unknown]
  - Vomiting [Unknown]
  - Petechiae [Unknown]
  - Ventricular extrasystoles [Unknown]
  - Oxygen saturation decreased [Unknown]
  - Pulmonary oedema [Unknown]

NARRATIVE: CASE EVENT DATE: 19901118
